FAERS Safety Report 9577706 (Version 1)
Quarter: 2013Q4

REPORT INFORMATION
  Report Type: Spontaneous
  Country: US (occurrence: US)
  Receive Date: 20131001
  Receipt Date: 20131001
  Transmission Date: 20140711
  Serious: No
  Sender: FDA-Public Use
  Company Number: US-AMGEN-USASP2013008741

PATIENT
  Sex: Female
  Weight: 66.21 kg

DRUGS (4)
  1. ENBREL [Suspect]
     Indication: PRODUCT USED FOR UNKNOWN INDICATION
     Dosage: 25 MG, TWO INJECTIONS EVERY WEEK
  2. BENAZEPRIL [Concomitant]
     Dosage: 5 MG, UNK
  3. LEVOTHYROXIN [Concomitant]
     Dosage: 175 MUG, UNK
  4. CALCIUM D                          /00944201/ [Concomitant]
     Dosage: UNK

REACTIONS (1)
  - Plantar fasciitis [Unknown]
